FAERS Safety Report 20091433 (Version 1)
Quarter: 2021Q4

REPORT INFORMATION
  Report Type: Spontaneous
  Country: US (occurrence: US)
  Receive Date: 20211119
  Receipt Date: 20211119
  Transmission Date: 20220303
  Serious: No
  Sender: FDA-Public Use
  Company Number: US-PFIZER INC-202101409355

PATIENT
  Age: 7 Decade
  Sex: Female

DRUGS (2)
  1. PREMARIN [Suspect]
     Active Substance: ESTROGENS, CONJUGATED
     Indication: Hysterectomy
     Dosage: 0.3 MG, 1X/DAY (0.3MG DOSAGE ONE TABLET DAILY)
     Dates: start: 1997
  2. PREMARIN [Suspect]
     Active Substance: ESTROGENS, CONJUGATED
     Dosage: 0.62 MG, 1X/DAY (ONE TAB OF 0.625MG DAILY)
     Dates: start: 2015

REACTIONS (1)
  - Drug ineffective [Not Recovered/Not Resolved]
